FAERS Safety Report 9038472 (Version 1)
Quarter: 2013Q1

REPORT INFORMATION
  Report Type: Report from Study
  Country: US (occurrence: US)
  Receive Date: 20130129
  Receipt Date: 20130129
  Transmission Date: 20140127
  Serious: Yes (Other)
  Sender: FDA-Public Use
  Company Number: US-ROCHE-1180648

PATIENT
  Sex: Female

DRUGS (13)
  1. XELODA [Suspect]
     Indication: NEOPLASM MALIGNANT
     Route: 065
  2. IRINOTECAN [Concomitant]
     Route: 065
     Dates: start: 20020729, end: 20021216
  3. IRINOTECAN [Concomitant]
     Route: 065
     Dates: start: 201202
  4. 5-FU [Concomitant]
     Route: 065
     Dates: start: 20020729, end: 20021216
  5. LEUCOVORIN [Concomitant]
     Route: 065
     Dates: start: 20020729, end: 20021216
  6. ZOMETA [Concomitant]
  7. LORAZEPAM [Concomitant]
     Dosage: AT BED TIME
     Route: 065
  8. MELATONIN [Concomitant]
     Route: 065
  9. OMEGA 3 FATTY ACIDS [Concomitant]
     Dosage: 1 CAPSULE
     Route: 065
  10. GREEN TEA CAPSULES [Concomitant]
     Dosage: 1 DAILY
     Route: 065
  11. SHITAKE MUSHROOM EXTRACT [Concomitant]
     Dosage: 1 DAILY
     Route: 065
  12. VITAMIN B6 [Concomitant]
     Dosage: 1 DAILY
     Route: 065
  13. CHLORELLA [Concomitant]
     Route: 065

REACTIONS (10)
  - Pulmonary embolism [Unknown]
  - Bone cancer [Unknown]
  - Lung neoplasm [Unknown]
  - Paronychia [Unknown]
  - Pyuria [Unknown]
  - Dysuria [Unknown]
  - Tinea pedis [Unknown]
  - Paronychia [Unknown]
  - Back pain [Unknown]
  - Constipation [Recovering/Resolving]
